FAERS Safety Report 25050661 (Version 1)
Quarter: 2025Q1

REPORT INFORMATION
  Report Type: Spontaneous
  Country: SA (occurrence: SA)
  Receive Date: 20250307
  Receipt Date: 20250307
  Transmission Date: 20250408
  Serious: Yes (Other)
  Sender: ELI LILLY AND COMPANY
  Company Number: SA-ELI_LILLY_AND_COMPANY-SA202502019515

PATIENT
  Sex: Female

DRUGS (1)
  1. TALTZ [Suspect]
     Active Substance: IXEKIZUMAB
     Indication: Psoriasis
     Dosage: 80 MG, MONTHLY (1/M)
     Route: 058

REACTIONS (1)
  - Thyroid cancer [Unknown]
